FAERS Safety Report 9870928 (Version 1)
Quarter: 2014Q1

REPORT INFORMATION
  Report Type: Spontaneous
  Country: IT (occurrence: None)
  Receive Date: 20140203
  Receipt Date: 20140203
  Transmission Date: 20141002
  Serious: Yes (Other)
  Sender: FDA-Public Use
  Company Number: IPC201401-000054

PATIENT
  Age: 72 Year
  Sex: Male

DRUGS (13)
  1. ALLOPURINOL (ALLOPURINOL) (ALLOPURINOL) [Suspect]
  2. FUROSEMIDE (FUROSEMIDE) (FUROSEMIDE) [Suspect]
  3. SERTRALINE (SERTRALINE) (SERTRALINE) [Suspect]
  4. ACETYLSALYCILATE [Suspect]
  5. BISOPROLOL [Suspect]
  6. OMEPRAZOLE (OMEPRAZOLE) (OMEPRAZOLE) [Suspect]
  7. BISOPROLOL [Suspect]
  8. OMEPRAZOLE (OMEPRAZOLE) (OMEPRAZOLE) [Suspect]
  9. QUETIAPINE (QUETIAPINE) (QUETIAPINE) [Suspect]
  10. RANOLAZINE [Suspect]
     Indication: ANGINA PECTORIS
  11. ATORVASTATIN [Suspect]
  12. NITROGLYCERINE [Concomitant]
  13. VALSARTAN [Concomitant]

REACTIONS (8)
  - Rhabdomyolysis [None]
  - Drug interaction [None]
  - Fall [None]
  - Nausea [None]
  - Vomiting [None]
  - Blood cholesterol increased [None]
  - Blood triglycerides increased [None]
  - Blood potassium increased [None]
